FAERS Safety Report 8315436-6 (Version None)
Quarter: 2012Q2

REPORT INFORMATION
  Report Type: 
  Country: None (occurrence: None)
  Receive Date: 20120426
  Receipt Date: 20120418
  Transmission Date: 20120825
  Serious: Yes (Death)
  Sender: FDA-Public Use
  Company Number: JP-AMGEN-JPNCT2011057478

PATIENT
  Age: 73 Year
  Sex: Male
  Weight: 54 kg

DRUGS (8)
  1. PANITUMUMAB [Suspect]
     Dosage: 6 MG/KG, Q2WK
     Route: 041
     Dates: start: 20101130, end: 20101130
  2. SPIRIVA [Concomitant]
     Dosage: UNK
     Route: 055
  3. THEO-DUR [Concomitant]
     Dosage: UNK
     Route: 048
  4. VITAMIN B12 [Concomitant]
     Dosage: UNK
     Route: 048
  5. LASIX [Concomitant]
     Dosage: UNK
     Route: 048
  6. PANITUMUMAB [Suspect]
     Indication: COLORECTAL CANCER
     Dosage: 6 MG/KG, Q2WK
     Route: 041
     Dates: start: 20100824, end: 20100824
  7. ALDACTONE [Concomitant]
     Dosage: UNK
     Route: 048
  8. SLOW-FE [Concomitant]
     Dosage: UNK
     Route: 048

REACTIONS (7)
  - PYREXIA [None]
  - DEATH [None]
  - FATIGUE [None]
  - CHRONIC OBSTRUCTIVE PULMONARY DISEASE [None]
  - PNEUMONIA [None]
  - DECREASED APPETITE [None]
  - VOMITING [None]
